FAERS Safety Report 5840546-2 (Version None)
Quarter: 2008Q3

REPORT INFORMATION
  Report Type: 
  Country: None (occurrence: None)
  Receive Date: 20080807
  Receipt Date: 20080807
  Transmission Date: 20090109
  Serious: No
  Sender: FDA-Public Use
  Company Number: None

PATIENT
  Age: 22 Year
  Sex: Female
  Weight: 131.5431 kg

DRUGS (1)
  1. LEVAQUIN [Suspect]
     Indication: CHLAMYDIAL INFECTION
     Dosage: 500MG ONCE A DAY PO, 12 DAYS
     Route: 048
     Dates: start: 20071215, end: 20071226

REACTIONS (13)
  - ANXIETY [None]
  - EATING DISORDER [None]
  - HEART RATE INCREASED [None]
  - HYPOAESTHESIA FACIAL [None]
  - MYODESOPSIA [None]
  - NEUROPATHY PERIPHERAL [None]
  - NIGHT SWEATS [None]
  - PARAESTHESIA [None]
  - SPIDER VEIN [None]
  - TACHYCARDIA [None]
  - THERMAL BURN [None]
  - TINNITUS [None]
  - TREMOR [None]
